FAERS Safety Report 10957720 (Version 15)
Quarter: 2021Q4

REPORT INFORMATION
  Report Type: Spontaneous
  Country: US (occurrence: US)
  Receive Date: 20150326
  Receipt Date: 20211217
  Transmission Date: 20220303
  Serious: Yes (Other)
  Sender: FDA-Public Use
  Company Number: US-PFIZER INC-2015103311

PATIENT
  Age: 69 Year
  Sex: Male
  Weight: 99.79 kg

DRUGS (6)
  1. XALATAN [Suspect]
     Active Substance: LATANOPROST
     Indication: Open angle glaucoma
     Dosage: 2 DROP, 1X/DAY (2 GTT, 1X/DAY (1 DROP BOTH EYES AT BEDTIME ONCE A DAY))
     Route: 047
     Dates: start: 19920510
  2. XALATAN [Suspect]
     Active Substance: LATANOPROST
     Indication: Intraocular pressure increased
     Dosage: UNK
     Route: 047
  3. XALATAN [Suspect]
     Active Substance: LATANOPROST
     Indication: Ocular vascular disorder
     Dosage: 2 DROP, 1X/DAY (2 GTT, 1X/DAY (125 MCG, 1 DROP BOTH EYES AT BEDTIME ONCE A DAY))
     Route: 047
  4. XALATAN [Suspect]
     Active Substance: LATANOPROST
     Indication: Ocular hypertension
     Dosage: 1 DROP, 1X/DAY (ONE DROP IN EACH EYE EVERY NIGHT BETWEEN 8:00PM AND 11:00PM BEFORE BED)
     Route: 047
  5. XALATAN [Suspect]
     Active Substance: LATANOPROST
     Indication: Neuropathy peripheral
  6. XALATAN [Suspect]
     Active Substance: LATANOPROST
     Indication: Retinal degeneration

REACTIONS (4)
  - Transient ischaemic attack [Unknown]
  - Type 2 diabetes mellitus [Unknown]
  - Depressed mood [Unknown]
  - Vision blurred [Recovered/Resolved]
